FAERS Safety Report 9009090 (Version 3)
Quarter: 2013Q1

REPORT INFORMATION
  Report Type: Spontaneous
  Country: US (occurrence: US)
  Receive Date: 20130111
  Receipt Date: 20130218
  Transmission Date: 20140127
  Serious: Yes (Other)
  Sender: FDA-Public Use
  Company Number: US-ASTRAZENECA-2012SE79642

PATIENT
  Age: 81 Year
  Sex: Female

DRUGS (9)
  1. ARIMIDEX [Suspect]
     Route: 048
  2. ARIMIDEX [Suspect]
     Route: 048
  3. NOLVADEX [Suspect]
     Indication: BREAST CANCER
     Route: 048
  4. TOPROL XL [Suspect]
     Route: 048
  5. ZETIA [Concomitant]
  6. SYNTHROID [Concomitant]
  7. SELENIUM [Concomitant]
  8. VITAMIN D [Concomitant]
  9. MULTIVITAMIN [Concomitant]

REACTIONS (4)
  - Breast cancer recurrent [Unknown]
  - Neoplasm malignant [Unknown]
  - Malaise [Unknown]
  - Adverse event [Unknown]
